FAERS Safety Report 9377652 (Version 1)
Quarter: 2013Q3

REPORT INFORMATION
  Report Type: Spontaneous
  Country: US (occurrence: US)
  Receive Date: 20130701
  Receipt Date: 20130701
  Transmission Date: 20140515
  Serious: Yes (Other)
  Sender: FDA-Public Use
  Company Number: US-PFIZER INC-2013192412

PATIENT
  Age: 69 Year
  Sex: Male
  Weight: 68.03 kg

DRUGS (6)
  1. ATORVASTATIN CALCIUM [Suspect]
     Indication: BLOOD CHOLESTEROL INCREASED
     Dosage: 80 MG, 1X/DAY
     Route: 048
     Dates: start: 2002
  2. ASPIRIN [Concomitant]
     Dosage: 80 MG, UNK
  3. PLAVIX [Concomitant]
     Dosage: 75 MG, UNK
  4. LISINOPRIL [Concomitant]
     Dosage: 25 MG, UNK
  5. METOPROLOL [Concomitant]
     Dosage: 25 MG, UNK
  6. FINASTERIDE [Concomitant]
     Dosage: 5 MG, UNK

REACTIONS (2)
  - Choking [Unknown]
  - Foreign body [Unknown]
